FAERS Safety Report 18459411 (Version 3)
Quarter: 2021Q1

REPORT INFORMATION
  Report Type: Spontaneous
  Country: US (occurrence: US)
  Receive Date: 20201103
  Receipt Date: 20210104
  Transmission Date: 20210419
  Serious: No
  Sender: FDA-Public Use
  Company Number: US-BEH-2020124188

PATIENT
  Age: 43 Year
  Sex: Male

DRUGS (8)
  1. PREDNISONE [PREDNISONE ACETATE] [Concomitant]
     Active Substance: PREDNISONE ACETATE
     Dosage: UNK, QD
     Route: 065
  2. ACETAMINOPHEN. [Concomitant]
     Active Substance: ACETAMINOPHEN
     Dosage: ALTERNATE WITH ADVIL
     Route: 065
  3. HIZENTRA [Suspect]
     Active Substance: HUMAN IMMUNOGLOBULIN G
     Indication: IMMUNODEFICIENCY
     Dosage: 20 GRAM, QW
     Route: 065
     Dates: start: 202006
  4. DIPHENHYDRAMINE [DIPHENHYDRAMINE HYDROCHLORIDE] [Concomitant]
     Active Substance: DIPHENHYDRAMINE HYDROCHLORIDE
     Indication: PREMEDICATION
  5. PREDNISONE [PREDNISONE ACETATE] [Concomitant]
     Active Substance: PREDNISONE ACETATE
     Dosage: 10 TO 20 MG
  6. ADVIL [Concomitant]
     Active Substance: IBUPROFEN
     Indication: PREMEDICATION
  7. DIPHENHYDRAMINE [DIPHENHYDRAMINE HYDROCHLORIDE] [Concomitant]
     Active Substance: DIPHENHYDRAMINE HYDROCHLORIDE
     Indication: PYREXIA
  8. ADVIL [Concomitant]
     Active Substance: IBUPROFEN
     Indication: PYREXIA

REACTIONS (11)
  - Nausea [Not Recovered/Not Resolved]
  - Weight decreased [Recovering/Resolving]
  - Malabsorption [Unknown]
  - Immunoglobulins increased [Unknown]
  - Malaise [Unknown]
  - Abdominal discomfort [Recovering/Resolving]
  - Eating disorder [Not Recovered/Not Resolved]
  - Blood immunoglobulin G increased [Unknown]
  - Pyrexia [Recovered/Resolved]
  - Infusion site reaction [Unknown]
  - Eating disorder [Recovered/Resolved]
